FAERS Safety Report 11925206 (Version 2)
Quarter: 2016Q1

REPORT INFORMATION
  Report Type: Report from Study
  Country: CN (occurrence: CN)
  Receive Date: 20160118
  Receipt Date: 20160201
  Transmission Date: 20160526
  Serious: Yes (Other)
  Sender: FDA-Public Use
  Company Number: CN-MYLANLABS-2016M1001958

PATIENT

DRUGS (5)
  1. OMACETAXINE MEPESUCCINATE [Suspect]
     Active Substance: OMACETAXINE MEPESUCCINATE
     Indication: ACUTE MYELOID LEUKAEMIA
     Dosage: UNK
     Dates: start: 201009, end: 201206
  2. TRETINOIN. [Suspect]
     Active Substance: TRETINOIN
     Indication: ACUTE MYELOID LEUKAEMIA
     Dosage: 4 COURSES
     Route: 065
     Dates: start: 201009, end: 201206
  3. CYTARABINE. [Suspect]
     Active Substance: CYTARABINE
     Indication: ACUTE MYELOID LEUKAEMIA
     Dosage: UNK
     Dates: start: 201009, end: 201206
  4. MITOXANTRONE [Suspect]
     Active Substance: MITOXANTRONE HYDROCHLORIDE
     Indication: ACUTE MYELOID LEUKAEMIA
     Dosage: UNK
     Dates: start: 201009, end: 201206
  5. ARSENIC TRIOXIDE [Suspect]
     Active Substance: ARSENIC TRIOXIDE
     Indication: ACUTE MYELOID LEUKAEMIA
     Dosage: UNK
     Route: 065
     Dates: start: 201009, end: 201206

REACTIONS (1)
  - Osteonecrosis [Unknown]
